FAERS Safety Report 5311850-1 (Version None)
Quarter: 2007Q2

REPORT INFORMATION
  Report Type: 
  Country: None (occurrence: None)
  Receive Date: 20070427
  Receipt Date: 20070427
  Transmission Date: 20071010
  Serious: Yes (Other)
  Sender: FDA-Public Use
  Company Number: None

PATIENT
  Sex: Female
  Weight: 68.0396 kg

DRUGS (19)
  1. LEVAQUIN [Suspect]
     Indication: CHRONIC SINUSITIS
     Dosage: 500MG   EVERY 24 HOURS  IV
     Route: 042
     Dates: start: 20070416, end: 20070417
  2. FOLIC ACID [Concomitant]
  3. ALDACTONE [Concomitant]
  4. AMITIZA [Concomitant]
  5. BONIVA [Concomitant]
  6. COUMADIN [Concomitant]
  7. FENTANYL [Concomitant]
  8. REGLAN [Concomitant]
  9. REQUIP [Concomitant]
  10. URISED [Concomitant]
  11. VALTREX [Concomitant]
  12. VESICARE [Concomitant]
  13. ZEGERID [Concomitant]
  14. VICODIN [Concomitant]
  15. FLORINEF ACETATE [Concomitant]
  16. XANAX [Concomitant]
  17. POTASSIUM CL [Concomitant]
  18. COLACE [Concomitant]
  19. NEXIUM [Concomitant]

REACTIONS (1)
  - SWELLING [None]
